FAERS Safety Report 5013730-8 (Version None)
Quarter: 2006Q2

REPORT INFORMATION
  Report Type: 
  Country: None (occurrence: None)
  Receive Date: 20060530
  Receipt Date: 20060517
  Transmission Date: 20061013
  Serious: Yes (Hospitalization)
  Sender: FDA-Public Use
  Company Number: JP-BRISTOL-MYERS SQUIBB COMPANY-13382775

PATIENT
  Age: 83 Year
  Sex: Male

DRUGS (1)
  1. KENACORT-A OPHTHALMIC OINTMENT [Suspect]
     Indication: NERVE BLOCK
     Route: 008

REACTIONS (2)
  - EXTRADURAL ABSCESS [None]
  - PSOAS ABSCESS [None]
